FAERS Safety Report 11534809 (Version 1)
Quarter: 2015Q3

REPORT INFORMATION
  Report Type: Spontaneous
  Country: CN (occurrence: CN)
  Receive Date: 20150922
  Receipt Date: 20150922
  Transmission Date: 20151125
  Serious: Yes (Hospitalization)
  Sender: FDA-Public Use
  Company Number: CN-JNJFOC-20150911963

PATIENT
  Age: 56 Year
  Sex: Male

DRUGS (2)
  1. KETOCONAZOLE. [Suspect]
     Active Substance: KETOCONAZOLE
     Indication: PRURITUS
     Route: 061
     Dates: start: 20141110, end: 20141110
  2. KETOCONAZOLE. [Suspect]
     Active Substance: KETOCONAZOLE
     Indication: SKIN EXFOLIATION
     Route: 061
     Dates: start: 20141110, end: 20141110

REACTIONS (6)
  - Purulent discharge [Recovering/Resolving]
  - Skin ulcer [Recovering/Resolving]
  - Drug hypersensitivity [Recovering/Resolving]
  - Application site swelling [Recovered/Resolved]
  - Burning sensation [Recovering/Resolving]
  - Skin exfoliation [Recovering/Resolving]

NARRATIVE: CASE EVENT DATE: 201411
